FAERS Safety Report 5999841-9 (Version None)
Quarter: 2008Q4

REPORT INFORMATION
  Report Type: 
  Country: None (occurrence: None)
  Receive Date: 20081215
  Receipt Date: 20071107
  Transmission Date: 20090506
  Serious: No
  Sender: FDA-Public Use
  Company Number: US-AMGEN-KDL211388

PATIENT
  Sex: Female

DRUGS (8)
  1. ENBREL [Suspect]
     Indication: RHEUMATOID ARTHRITIS
     Route: 058
     Dates: start: 20051116
  2. METHOTREXATE [Concomitant]
     Route: 048
     Dates: start: 20051101
  3. HYDROCODONE BITARTRATE [Concomitant]
  4. ASPIRIN [Concomitant]
  5. SERZONE [Concomitant]
  6. PRILOSEC [Concomitant]
  7. CLARITIN [Concomitant]
  8. ALBUTEROL [Concomitant]

REACTIONS (4)
  - PNEUMONIA [None]
  - PYREXIA [None]
  - RHEUMATOID ARTHRITIS [None]
  - URINARY TRACT INFECTION [None]
